FAERS Safety Report 9253768 (Version 7)
Quarter: 2013Q3

REPORT INFORMATION
  Report Type: Spontaneous
  Country: US (occurrence: US)
  Receive Date: 20130425
  Receipt Date: 20130718
  Transmission Date: 20140515
  Serious: Yes (Other)
  Sender: FDA-Public Use
  Company Number: US-PFIZER INC-2013127230

PATIENT
  Age: 60 Year
  Sex: Female
  Weight: 82.99 kg

DRUGS (16)
  1. SUTENT [Suspect]
     Indication: RENAL CELL CARCINOMA
     Dosage: 50 MG DAILY (FOR 28 DAYS AND THEN OFF 14 DAYS)
     Route: 048
     Dates: start: 20130404, end: 20130506
  2. MECLIZINE [Concomitant]
     Dosage: UNK
  3. COLACE [Concomitant]
     Dosage: UNK
  4. HYDROCODONE [Concomitant]
     Dosage: UNK
  5. COMPAZINE [Concomitant]
     Dosage: UNK
  6. PROTONIX [Concomitant]
     Dosage: UNK
  7. ACYCLOVIR [Concomitant]
     Dosage: 400 MG, 3X/DAY (1 TABLET(S) BY MOUTH TID )
     Route: 048
  8. DEXTROMETHORPHAN [Concomitant]
     Indication: NASOPHARYNGITIS
     Dosage: 1 ML, (10 MG/5 ML), UNK
     Route: 048
  9. DOCQLACE [Concomitant]
     Dosage: 100 MG, 2X/DAY (1 CAPSULE(S) BY MOUTH BID)
     Route: 048
  10. MEGACE [Concomitant]
     Dosage: 20 ML, 400 MG/10 ML (40 MG/ML), UNK
     Route: 048
  11. MIRALAX [Concomitant]
     Dosage: 17 G, UNK (1 UNIT(S) BY MOUTH)
     Route: 048
  12. PANTOPRAZOLE [Concomitant]
     Dosage: 40 MG, UNK
     Route: 048
  13. PROCHLORPERAZINE [Concomitant]
     Dosage: 10 MG, 3X/DAY (1 TABLET(S) BY MOUTH TID)
     Route: 048
  14. LISINOPRIL [Concomitant]
     Dosage: 20 MG, 1X/DAY
     Route: 048
  15. LISINOPRIL [Concomitant]
     Dosage: 20 MG, 2X/DAY (2 TABS DAILY)
  16. AMLODIPINE [Concomitant]
     Dosage: 5 MG, 1X/DAY

REACTIONS (23)
  - Hypertension [Unknown]
  - Dysgeusia [Unknown]
  - Palmar-plantar erythrodysaesthesia syndrome [Not Recovered/Not Resolved]
  - Local swelling [Not Recovered/Not Resolved]
  - Blister [Not Recovered/Not Resolved]
  - Fatigue [Unknown]
  - Stomatitis [Unknown]
  - Glossodynia [Unknown]
  - Alopecia [Unknown]
  - Hair colour changes [Unknown]
  - Abdominal pain [Unknown]
  - Vomiting [Recovering/Resolving]
  - Nausea [Recovering/Resolving]
  - Constipation [Unknown]
  - Rash [Unknown]
  - Blister [Unknown]
  - Platelet count decreased [Unknown]
  - White blood cell count decreased [Unknown]
  - Anaemia [Unknown]
  - Periorbital oedema [Not Recovered/Not Resolved]
  - Eye swelling [Not Recovered/Not Resolved]
  - Headache [Not Recovered/Not Resolved]
  - Weight decreased [Unknown]
